FAERS Safety Report 8370322-0 (Version None)
Quarter: 2012Q2

REPORT INFORMATION
  Report Type: 
  Country: None (occurrence: None)
  Receive Date: 20120518
  Receipt Date: 20120208
  Transmission Date: 20120825
  Serious: No
  Sender: FDA-Public Use
  Company Number: US-ASTRAZENECA-2012SE12470

PATIENT
  Sex: Female

DRUGS (7)
  1. OMEGA-3 FATTY ACIDS [Concomitant]
  2. HYDROCHLOROTHIAZIDE [Concomitant]
  3. PRILOSEC OTC [Suspect]
     Indication: DYSPEPSIA
     Dosage: 1 TABLET, 2 /DAY FOR 2 DAYS
     Route: 048
     Dates: start: 20120206, end: 20120207
  4. VITAMIN C /00008001/ [Concomitant]
  5. PRILOSEC OTC [Suspect]
     Dosage: 1 TABLET, 1 /DAY FOR 1 DAY
     Route: 048
     Dates: start: 20120208, end: 20120208
  6. FERROUS SULFATE TAB [Concomitant]
  7. ASPIRIN [Concomitant]

REACTIONS (3)
  - BLOOD GLUCOSE DECREASED [None]
  - NAUSEA [None]
  - NERVOUSNESS [None]
